FAERS Safety Report 6611768-8 (Version None)
Quarter: 2010Q1

REPORT INFORMATION
  Report Type: 
  Country: None (occurrence: None)
  Receive Date: 20100301
  Receipt Date: 20100301
  Transmission Date: 20100710
  Serious: Yes (Life-Threatening)
  Sender: FDA-Public Use
  Company Number: None

PATIENT
  Age: 41 Year
  Sex: Male
  Weight: 74.8435 kg

DRUGS (2)
  1. ROLAIDS REGULAR STRENGTH ROLAIDS REGULAR STRENGTH ROLAIDS [Suspect]
     Indication: ABDOMINAL DISCOMFORT
     Dosage: UP TO 20 TABLETS EVERYDAY PO
     Route: 048
     Dates: start: 20000101, end: 20100212
  2. ROLAIDS EXTRA STRENGTH ROLAIDS EXTRA STRENGTH ROLAIDS [Suspect]
     Indication: ABDOMINAL DISCOMFORT
     Dosage: UP TO 20 TABLETS EVERYDAY PO
     Route: 048
     Dates: start: 20000101, end: 20100212

REACTIONS (8)
  - ABDOMINAL DISCOMFORT [None]
  - ABDOMINAL PAIN UPPER [None]
  - ASTHENIA [None]
  - DIARRHOEA [None]
  - DIZZINESS [None]
  - NAUSEA [None]
  - PALPITATIONS [None]
  - VOMITING [None]
